FAERS Safety Report 5509569-7 (Version None)
Quarter: 2007Q4

REPORT INFORMATION
  Report Type: 
  Country: None (occurrence: None)
  Receive Date: 20071106
  Receipt Date: 20071019
  Transmission Date: 20080405
  Serious: Yes (Death)
  Sender: FDA-Public Use
  Company Number: 2007EU002333

PATIENT
  Age: 64 Year
  Sex: Female

DRUGS (9)
  1. PROGRAF [Suspect]
     Indication: TRANSPLANT REJECTION
     Dosage: 3 MG, BID, ORAL
     Route: 048
     Dates: end: 20070321
  2. PREDNISOLONE [Concomitant]
  3. CELLCEPT [Concomitant]
  4. ROVALCYTE (VALGANCICLOVIR) [Concomitant]
  5. NEURONTIN [Concomitant]
  6. CLONAZEPAM [Concomitant]
  7. COLECALCIFEROL (COLECALCIFEROL) [Concomitant]
  8. PRAVASTATIN [Concomitant]
  9. IMOVANE (ZOPICLONE) [Concomitant]

REACTIONS (18)
  - ASCITES [None]
  - BACTERIAL INFECTION [None]
  - BLOOD CULTURE POSITIVE [None]
  - BLOOD LACTATE DEHYDROGENASE INCREASED [None]
  - DIALYSIS [None]
  - ESCHERICHIA INFECTION [None]
  - GENERAL PHYSICAL HEALTH DETERIORATION [None]
  - HYPERTENSIVE CRISIS [None]
  - INFLAMMATION [None]
  - MULTI-ORGAN DISORDER [None]
  - PERITONEAL EFFUSION [None]
  - PNEUMOPERITONEUM [None]
  - PSEUDOMONAS INFECTION [None]
  - RENAL FAILURE ACUTE [None]
  - RESPIRATORY DISTRESS [None]
  - STATUS EPILEPTICUS [None]
  - THROMBOTIC MICROANGIOPATHY [None]
  - TRACHEAL DISORDER [None]
